FAERS Safety Report 19549577 (Version 1)
Quarter: 2021Q3

REPORT INFORMATION
  Report Type: Spontaneous
  Country: US (occurrence: US)
  Receive Date: 20210715
  Receipt Date: 20210715
  Transmission Date: 20211014
  Serious: No
  Sender: FDA-Public Use
  Company Number: None

PATIENT
  Sex: Female
  Weight: 67.13 kg

DRUGS (13)
  1. CLONIDINE. [Concomitant]
     Active Substance: CLONIDINE
  2. PROBIOTIC [Concomitant]
     Active Substance: PROBIOTICS NOS
  3. LEVOTHYROXINE. [Concomitant]
     Active Substance: LEVOTHYROXINE
  4. OZEMPIC [Concomitant]
     Active Substance: SEMAGLUTIDE
  5. METOPROLOL SAC [Concomitant]
  6. ATORVASTATIN [Concomitant]
     Active Substance: ATORVASTATIN
  7. METFORMIN HCL ER 500MG TABLET [Suspect]
     Active Substance: METFORMIN HYDROCHLORIDE
     Indication: PRODUCT USED FOR UNKNOWN INDICATION
     Dosage: ?          QUANTITY:1 DF DOSAGE FORM;?
     Route: 048
     Dates: start: 20201222, end: 20210426
  8. METFORMAN [Concomitant]
     Active Substance: METFORMIN HYDROCHLORIDE
  9. SILVER CENTRUM [Concomitant]
  10. HYDROCHLORATHIAZ [Concomitant]
  11. VALSARTIN [Concomitant]
     Active Substance: VALSARTAN
  12. GLIPIZIDE XL [Concomitant]
     Active Substance: GLIPIZIDE
  13. ASPIRIN. [Concomitant]
     Active Substance: ASPIRIN

REACTIONS (1)
  - Product use issue [None]
